FAERS Safety Report 7881468-5 (Version None)
Quarter: 2011Q4

REPORT INFORMATION
  Report Type: 
  Country: None (occurrence: None)
  Receive Date: 20111101
  Receipt Date: 20110531
  Transmission Date: 20120403
  Serious: No
  Sender: FDA-Public Use
  Company Number: US-AMGEN-USASP2011028197

PATIENT
  Age: 61 Year
  Sex: Female

DRUGS (1)
  1. ENBREL [Suspect]
     Indication: RHEUMATOID ARTHRITIS
     Dosage: UNK
     Dates: start: 20100809, end: 20101101

REACTIONS (9)
  - INJECTION SITE PAIN [None]
  - ARTHRALGIA [None]
  - PYREXIA [None]
  - INJECTION SITE REACTION [None]
  - PAIN IN EXTREMITY [None]
  - DRUG INEFFECTIVE [None]
  - OEDEMA PERIPHERAL [None]
  - INJECTION SITE SWELLING [None]
  - JOINT SWELLING [None]
